FAERS Safety Report 18363200 (Version 1)
Quarter: 2020Q4

REPORT INFORMATION
  Report Type: Spontaneous
  Country: US (occurrence: US)
  Receive Date: 20201008
  Receipt Date: 20201008
  Transmission Date: 20210114
  Serious: Yes (Hospitalization, Other)
  Sender: FDA-Public Use
  Company Number: US-CELGENEUS-USA-20200905741

PATIENT
  Age: 55 Year
  Sex: Female

DRUGS (4)
  1. ATEZOLIZUMAB. [Suspect]
     Active Substance: ATEZOLIZUMAB
     Indication: OFF LABEL USE
  2. ABRAXANE [Suspect]
     Active Substance: PACLITAXEL
     Indication: TRIPLE NEGATIVE BREAST CANCER
     Dosage: 100 MG/M2
     Route: 041
     Dates: start: 202001
  3. ABRAXANE [Suspect]
     Active Substance: PACLITAXEL
     Indication: OFF LABEL USE
  4. ATEZOLIZUMAB. [Suspect]
     Active Substance: ATEZOLIZUMAB
     Indication: TRIPLE NEGATIVE BREAST CANCER
     Dosage: 840 MILLIGRAM/SQ. METER
     Route: 065
     Dates: start: 202001

REACTIONS (1)
  - Tumour lysis syndrome [Recovered/Resolved]

NARRATIVE: CASE EVENT DATE: 202001
